FAERS Safety Report 12939281 (Version 1)
Quarter: 2016Q4

REPORT INFORMATION
  Report Type: Spontaneous
  Country: DE (occurrence: DE)
  Receive Date: 20161114
  Receipt Date: 20161114
  Transmission Date: 20170207
  Serious: Yes (Death, Other)
  Sender: FDA-Public Use
  Company Number: DE-TEVA-711799GER

PATIENT
  Age: 5 Day

DRUGS (4)
  1. DEXAMETHASONE. [Suspect]
     Active Substance: DEXAMETHASONE
     Dosage: 6 MILLIGRAM DAILY; MOTHER RECEIVED ORAL 4 X 6 MG PER DAY
     Route: 064
  2. DEXAMETHASONE. [Suspect]
     Active Substance: DEXAMETHASONE
     Dosage: ORAL FOR TAPERING BY MOTHER
     Route: 064
  3. DEXAMETHASONE. [Suspect]
     Active Substance: DEXAMETHASONE
     Indication: CEREBRAL HAEMANGIOMA
     Route: 064
  4. DEXAMETHASONE. [Suspect]
     Active Substance: DEXAMETHASONE
     Dosage: 8 MILLIGRAM DAILY; MOTHER RECEIVED ORAL 4 X 8 MG PER DAY
     Route: 064

REACTIONS (5)
  - Ileus [Fatal]
  - Premature baby [Unknown]
  - Foetal monitoring abnormal [Unknown]
  - Foetal exposure during pregnancy [Unknown]
  - Foetal growth restriction [Not Recovered/Not Resolved]
